FAERS Safety Report 14414983 (Version 1)
Quarter: 2018Q1

REPORT INFORMATION
  Report Type: Spontaneous
  Country: US (occurrence: US)
  Receive Date: 20180118
  Receipt Date: 20180118
  Transmission Date: 20180509
  Serious: No
  Sender: FDA-Public Use
  Company Number: None

PATIENT
  Age: 35 Year
  Sex: Female

DRUGS (1)
  1. ENBREL [Suspect]
     Active Substance: ETANERCEPT
     Indication: RHEUMATOID ARTHRITIS
     Dosage: FREQUENCY - Q 7 DAYS
     Route: 058
     Dates: start: 20170530

REACTIONS (2)
  - Musculoskeletal stiffness [None]
  - Peripheral swelling [None]

NARRATIVE: CASE EVENT DATE: 20180118
